FAERS Safety Report 7146192-5 (Version None)
Quarter: 2010Q4

REPORT INFORMATION
  Report Type: 
  Country: None (occurrence: None)
  Receive Date: 20101208
  Receipt Date: 20101125
  Transmission Date: 20110411
  Serious: Yes (Other)
  Sender: FDA-Public Use
  Company Number: PHHY2010DE82429

PATIENT
  Sex: Female
  Weight: 69 kg

DRUGS (14)
  1. DIOVAN TRIPLE DTR+ [Suspect]
     Indication: HYPERTENSION
     Dosage: 10/160/12.5 MG,
     Route: 048
     Dates: start: 20100727
  2. DIOVAN TRIPLE DTR+ [Suspect]
     Dosage: 10/320/25 MG
  3. ALLOPURINOL [Concomitant]
     Dosage: HALF DAILY
  4. SIMVASTATIN [Concomitant]
     Dosage: HALF DAILY
  5. ENALAPRIL MALEATE [Concomitant]
  6. TORASEMIDE [Concomitant]
     Dosage: 20 MG, HALF TABET, UNK
  7. MOXONIDINE [Concomitant]
     Dosage: ONE TABLET, DAILY
  8. FORMOTEROL FUMARATE [Concomitant]
     Dosage: TWICE DAILY
  9. DICLAC [Concomitant]
     Dosage: 75 , UNK
  10. IBUPROFEN [Concomitant]
     Dosage: 600, UNK
  11. BERODUAL [Concomitant]
  12. NITRANGIN [Concomitant]
  13. OMEP [Concomitant]
     Dosage: 20 MG, UNK
  14. SERETIDE [Concomitant]
     Dosage: 50 MCG/500 MCG

REACTIONS (4)
  - CONDITION AGGRAVATED [None]
  - DIABETIC NEPHROPATHY [None]
  - RENAL FAILURE [None]
  - RESPIRATORY FAILURE [None]
